FAERS Safety Report 12843929 (Version 1)
Quarter: 2016Q4

REPORT INFORMATION
  Report Type: Spontaneous
  Country: AU (occurrence: AU)
  Receive Date: 20161013
  Receipt Date: 20161013
  Transmission Date: 20170207
  Serious: Yes (Other)
  Sender: FDA-Public Use
  Company Number: PHHY2016AU140414

PATIENT
  Age: 53 Year
  Sex: Male

DRUGS (8)
  1. AMIODARONE [Suspect]
     Active Substance: AMIODARONE
     Indication: PRODUCT USED FOR UNKNOWN INDICATION
     Route: 042
  2. TAZOCIN [Concomitant]
     Active Substance: PIPERACILLIN SODIUM\TAZOBACTAM SODIUM
     Indication: NEUTROPENIC SEPSIS
     Route: 065
  3. AMIODARONE [Suspect]
     Active Substance: AMIODARONE
     Route: 048
  4. VALACICLOVIR [Suspect]
     Active Substance: VALACYCLOVIR HYDROCHLORIDE
     Indication: PRODUCT USED FOR UNKNOWN INDICATION
     Route: 065
  5. IDARUBICIN [Concomitant]
     Active Substance: IDARUBICIN
     Indication: CHRONIC MYELOID LEUKAEMIA
     Route: 065
  6. DAPTOMYCIN. [Concomitant]
     Active Substance: DAPTOMYCIN
     Indication: NEUTROPENIC SEPSIS
     Route: 065
  7. PANTOPRAZOLE [Suspect]
     Active Substance: PANTOPRAZOLE SODIUM
     Indication: PRODUCT USED FOR UNKNOWN INDICATION
     Route: 065
  8. DASATINIB [Suspect]
     Active Substance: DASATINIB
     Indication: CHRONIC MYELOID LEUKAEMIA
     Route: 065

REACTIONS (1)
  - Nephropathy toxic [Unknown]
